FAERS Safety Report 8899093 (Version 1)
Quarter: 2012Q4

REPORT INFORMATION
  Report Type: 
  Country: US (occurrence: US)
  Receive Date: 20121108
  Receipt Date: 20121108
  Transmission Date: 20130627
  Serious: No
  Sender: FDA-Public Use
  Company Number: US-AMGEN-USASP2012034950

PATIENT
  Sex: Male
  Weight: 97.51 kg

DRUGS (4)
  1. ENBREL [Suspect]
     Indication: PRODUCT USED FOR UNKNOWN INDICATION
     Dosage: 50 mg, qwk
     Route: 058
  2. ASPIRIN [Concomitant]
     Dosage: 300 mg, UNK
  3. PREDNISONE [Concomitant]
     Dosage: 1 mg, UNK
  4. METHOTREXATE [Concomitant]
     Dosage: 2.5 mg, UNK

REACTIONS (2)
  - Contusion [Unknown]
  - Fatigue [Unknown]
